FAERS Safety Report 8586346-4 (Version None)
Quarter: 2012Q3

REPORT INFORMATION
  Report Type: 
  Country: None (occurrence: None)
  Receive Date: 20120810
  Receipt Date: 19930314
  Transmission Date: 20120928
  Serious: Yes (Death, Hospitalization)
  Sender: FDA-Public Use
  Company Number: US-ROCHE-1098809

PATIENT
  Age: 49 Year
  Sex: Male

DRUGS (1)
  1. ACTIVASE [Suspect]
     Indication: ACUTE MYOCARDIAL INFARCTION

REACTIONS (3)
  - BACK PAIN [None]
  - CHEST PAIN [None]
  - CARDIO-RESPIRATORY ARREST [None]
